FAERS Safety Report 16628344 (Version 5)
Quarter: 2020Q1

REPORT INFORMATION
  Report Type: Report from Study
  Country: JP (occurrence: JP)
  Receive Date: 20190724
  Receipt Date: 20200103
  Transmission Date: 20200409
  Serious: Yes (Hospitalization, Other)
  Sender: FDA-Public Use
  Company Number: JP-TAKEDA-2019TJP014422

PATIENT
  Age: 86 Year
  Sex: Female
  Weight: 42.7 kg

DRUGS (22)
  1. LENADEX [Suspect]
     Active Substance: DEXAMETHASONE ACETATE
     Dosage: 12 MILLIGRAM, 1/WEEK
     Route: 048
     Dates: start: 20190711, end: 20191108
  2. OSTELUC [Concomitant]
     Active Substance: ETODOLAC
     Indication: BACK PAIN
     Dosage: 200 MILLIGRAM, BID
     Route: 048
     Dates: start: 20190623
  3. AMITIZA [Concomitant]
     Active Substance: LUBIPROSTONE
     Indication: CONSTIPATION
     Dosage: 21 MICROGRAM, BID
     Route: 048
     Dates: start: 20191031
  4. LAXOBERON [Concomitant]
     Active Substance: SODIUM PICOSULFATE
     Indication: CONSTIPATION
     Dosage: 5 MILLIGRAM, QD
     Route: 048
  5. K-SUPPLY [Concomitant]
     Active Substance: POTASSIUM CHLORIDE
     Indication: HYPOKALAEMIA
     Dosage: 600 MILLIGRAM, BID
     Route: 048
     Dates: start: 20190620
  6. PARIET [Concomitant]
     Active Substance: RABEPRAZOLE SODIUM
     Indication: PROPHYLAXIS
     Dosage: 10 MILLIGRAM, QD
     Route: 048
     Dates: start: 20190623
  7. BAYASPIRIN [Concomitant]
     Active Substance: ASPIRIN
     Indication: PROPHYLAXIS
     Dosage: 100 MILLIGRAM, QD
     Route: 048
  8. IXAZOMIB [Suspect]
     Active Substance: IXAZOMIB
     Indication: PLASMA CELL MYELOMA
     Dosage: 2.3 MILLIGRAM
     Route: 048
     Dates: start: 20190517, end: 20190531
  9. LENADEX [Suspect]
     Active Substance: DEXAMETHASONE ACETATE
     Indication: PLASMA CELL MYELOMA
     Dosage: 20 MILLIGRAM, 1/WEEK
     Route: 048
     Dates: start: 20190517, end: 20190617
  10. TRAMAL [Concomitant]
     Active Substance: TRAMADOL
     Indication: BACK PAIN
     Dosage: 25 MILLIGRAM, QID
     Route: 048
     Dates: start: 20190425
  11. BI SIFROL [Concomitant]
     Active Substance: PRAMIPEXOLE
     Indication: BACK PAIN
     Dosage: 10 MILLIGRAM, QD
     Route: 048
  12. IXAZOMIB [Suspect]
     Active Substance: IXAZOMIB
     Dosage: 2.3 MILLIGRAM
     Route: 048
     Dates: start: 20190712, end: 20191108
  13. REVLIMID [Suspect]
     Active Substance: LENALIDOMIDE
     Dosage: 10 MILLIGRAM, QD
     Route: 048
     Dates: start: 20190711, end: 20191113
  14. BELSOMRA [Concomitant]
     Active Substance: SUVOREXANT
     Indication: INSOMNIA
     Dosage: 15 MILLIGRAM, QD
     Route: 048
  15. ROZEREM [Concomitant]
     Active Substance: RAMELTEON
     Indication: INSOMNIA
     Dosage: 8 MILLIGRAM, QD
     Route: 048
  16. CABAGIN-U [Concomitant]
     Active Substance: METHYLMETHIONINE SULFONIUM CHLORIDE
     Indication: PROPHYLAXIS
     Dosage: 25 MILLIGRAM, BID
     Route: 048
  17. BI SIFROL [Concomitant]
     Active Substance: PRAMIPEXOLE
     Indication: RESTLESS LEGS SYNDROME
     Dosage: 0.5 MILLIGRAM, QD
     Route: 048
  18. IXAZOMIB [Suspect]
     Active Substance: IXAZOMIB
     Dosage: 2.3 MILLIGRAM, QD
     Route: 048
     Dates: start: 20190613, end: 20190616
  19. REVLIMID [Suspect]
     Active Substance: LENALIDOMIDE
     Indication: PLASMA CELL MYELOMA
     Dosage: 10 MILLIGRAM, QD
     Route: 048
     Dates: start: 20190517, end: 20190620
  20. VITAMINS NOS [Concomitant]
     Active Substance: VITAMINS
     Indication: BACK PAIN
     Dosage: 5 MICROGRAM, TID
     Route: 048
     Dates: start: 20190623
  21. LYRICA [Concomitant]
     Active Substance: PREGABALIN
     Indication: BACK PAIN
     Dosage: 25 MILLIGRAM, QD
     Route: 048
  22. DAIPHEN [Concomitant]
     Active Substance: SULFAMETHOXAZOLE\TRIMETHOPRIM
     Indication: PROPHYLAXIS
     Dosage: 0.5 DOSAGE FORM, QD
     Route: 048

REACTIONS (5)
  - Vomiting [Recovered/Resolved]
  - Malaise [Recovered/Resolved]
  - Diarrhoea [Recovered/Resolved]
  - Pneumonia [Recovered/Resolved]
  - Overdose [Unknown]

NARRATIVE: CASE EVENT DATE: 20190614
